FAERS Safety Report 7157291-6 (Version None)
Quarter: 2010Q4

REPORT INFORMATION
  Report Type: 
  Country: None (occurrence: None)
  Receive Date: 20101214
  Receipt Date: 20101206
  Transmission Date: 20110411
  Serious: No
  Sender: FDA-Public Use
  Company Number: US-PFIZER INC-2010165835

PATIENT
  Sex: Male
  Weight: 59.864 kg

DRUGS (3)
  1. ZITHROMAX [Suspect]
     Indication: PHARYNGITIS STREPTOCOCCAL
     Dosage: 5 MG, 2X/DAY
     Route: 048
     Dates: start: 20101204
  2. LOPRESSOR [Concomitant]
     Indication: BLOOD PRESSURE ABNORMAL
     Dosage: UNK
  3. ACETYLSALICYLIC ACID [Concomitant]
     Indication: BLOOD PRESSURE ABNORMAL
     Dosage: UNK

REACTIONS (1)
  - MEDICATION ERROR [None]
